FAERS Safety Report 22081862 (Version 1)
Quarter: 2023Q1

REPORT INFORMATION
  Report Type: Spontaneous
  Country: US (occurrence: US)
  Receive Date: 20230310
  Receipt Date: 20230310
  Transmission Date: 20230417
  Serious: Yes (Other)
  Sender: FDA-Public Use
  Company Number: US-JNJFOC-20230315644

PATIENT
  Sex: Female

DRUGS (1)
  1. ELMIRON [Suspect]
     Active Substance: PENTOSAN POLYSULFATE SODIUM
     Indication: Cystitis interstitial
     Dosage: //1980 (CONFLICTINGLY AS REPORTED)
     Route: 048
     Dates: end: 2018

REACTIONS (3)
  - Maculopathy [Unknown]
  - Retinal degeneration [Unknown]
  - Retinopathy [Unknown]
